FAERS Safety Report 6204867-6 (Version None)
Quarter: 2009Q2

REPORT INFORMATION
  Report Type: 
  Country: None (occurrence: None)
  Receive Date: 20090522
  Receipt Date: 20090512
  Transmission Date: 20091009
  Serious: Yes (Hospitalization)
  Sender: FDA-Public Use
  Company Number: 2009005186

PATIENT
  Age: 34 Year
  Sex: Female

DRUGS (2)
  1. PROVIGIL [Suspect]
     Dosage: ORAL
     Route: 048
  2. AVONEX [Concomitant]

REACTIONS (3)
  - DEPRESSION [None]
  - DRUG DEPENDENCE [None]
  - SUICIDAL IDEATION [None]
